FAERS Safety Report 8553318-5 (Version None)
Quarter: 2012Q3

REPORT INFORMATION
  Report Type: 
  Country: None (occurrence: None)
  Receive Date: 20120731
  Receipt Date: 20120726
  Transmission Date: 20120928
  Serious: Yes (Other)
  Sender: FDA-Public Use
  Company Number: CA-ROCHE-1071935

PATIENT
  Sex: Female

DRUGS (12)
  1. MORPHINE SULFATE [Concomitant]
     Dosage: HYDRAMORPHINE
  2. LORAZEPAM [Concomitant]
  3. METOCLOPRAMIDE [Concomitant]
  4. LACTULOSE [Concomitant]
  5. VEMURAFENIB [Suspect]
     Indication: METASTATIC MALIGNANT MELANOMA
     Route: 048
     Dates: start: 20120501
  6. DEXAMETHASONE [Concomitant]
  7. HEPARIN [Concomitant]
  8. SENOKOT [Concomitant]
  9. MIRALAX [Concomitant]
  10. ONDANSETRON [Concomitant]
  11. DILAUDID [Concomitant]
  12. GLYCERIN SUPPOSITORY [Concomitant]

REACTIONS (6)
  - ABDOMINAL DISCOMFORT [None]
  - DIARRHOEA [None]
  - CONVULSION [None]
  - NAUSEA [None]
  - RASH GENERALISED [None]
  - RASH [None]
